FAERS Safety Report 26158054 (Version 1)
Quarter: 2025Q4

REPORT INFORMATION
  Report Type: Spontaneous
  Country: US (occurrence: None)
  Receive Date: 20251215
  Receipt Date: 20251215
  Transmission Date: 20260118
  Serious: Yes (Hospitalization)
  Sender: FDA-CTU
  Company Number: None

PATIENT
  Sex: Male

DRUGS (11)
  1. VYNDAMAX [Suspect]
     Active Substance: TAFAMIDIS
     Dosage: AKE 1 CAPSULE BY MOUTH EVERY DAY
     Route: 048
     Dates: start: 20250730
  2. B COMPLEX CAP VIT C [Concomitant]
  3. IRON COMPLEX CAP [Concomitant]
  4. JARDIANCE [Concomitant]
     Active Substance: EMPAGLIFLOZIN
  5. LASIX TAB 20MG [Concomitant]
  6. MELOXICAM [Concomitant]
     Active Substance: MELOXICAM
  7. METOPROLOL SUCCINATE [Concomitant]
     Active Substance: METOPROLOL SUCCINATE
  8. MYRBETRIO TAB 25MG [Concomitant]
  9. OMEPRAZOLE [Concomitant]
     Active Substance: OMEPRAZOLE
  10. POT CHLORIDE TAB 20MEQ ER [Concomitant]
  11. PROBIOTIC CAP [Concomitant]

REACTIONS (2)
  - Unevaluable event [None]
  - Hospitalisation [None]
